FAERS Safety Report 20895464 (Version 3)
Quarter: 2022Q2

REPORT INFORMATION
  Report Type: Report from Study
  Country: US (occurrence: None)
  Receive Date: 20220531
  Receipt Date: 20220616
  Transmission Date: 20220721
  Serious: Yes (Hospitalization)
  Sender: FDA-Public Use
  Company Number: US-ROCHE-3103695

PATIENT
  Age: 67 Year
  Sex: Female
  Weight: 60.6 kg

DRUGS (4)
  1. ATEZOLIZUMAB [Suspect]
     Active Substance: ATEZOLIZUMAB
     Indication: Small cell lung cancer
     Dosage: ON 03/NOV/2020,SHE RECEIVED THE LAST DOSE OF ATEZOLIZUMAB
     Route: 041
     Dates: start: 20201103
  2. CISPLATIN [Suspect]
     Active Substance: CISPLATIN
     Indication: Small cell lung cancer
     Dosage: ON 03/NOV/2020 SHE RECEIVED THE LAST DOSE OF DRUG.??ON 02/DEC/2020, SHE RECEIVED THE LAST DOSE OF DR
     Route: 065
     Dates: start: 20201103
  3. ETOPOSIDE [Suspect]
     Active Substance: ETOPOSIDE
     Indication: Small cell lung cancer
     Dosage: ON 05/NOV/2020, SHE RECEIVED THE LAST DOSE OF DRUG.??ON 04/DEC/2020, SHE RECEIVED THE LAST DOSE OF D
     Route: 065
     Dates: start: 20201103
  4. ASPIRIN [Concomitant]
     Active Substance: ASPIRIN

REACTIONS (2)
  - Troponin increased [Recovered/Resolved]
  - Myocarditis [Recovered/Resolved]

NARRATIVE: CASE EVENT DATE: 20201123
